FAERS Safety Report 21963068 (Version 1)
Quarter: 2023Q1

REPORT INFORMATION
  Report Type: Spontaneous
  Country: US (occurrence: US)
  Receive Date: 20230207
  Receipt Date: 20230207
  Transmission Date: 20230417
  Serious: Yes (Hospitalization, Other)
  Sender: FDA-Public Use
  Company Number: US-BIOVITRUM-2023US01727

PATIENT
  Age: 0 Year
  Sex: Male

DRUGS (1)
  1. SYNAGIS [Suspect]
     Active Substance: PALIVIZUMAB
     Indication: Antiviral prophylaxis
     Dates: start: 202211

REACTIONS (4)
  - Respiratory distress [Unknown]
  - Hypoxia [Unknown]
  - Bronchiolitis [Unknown]
  - Metapneumovirus infection [Unknown]

NARRATIVE: CASE EVENT DATE: 20230128
